FAERS Safety Report 4861110-8 (Version None)
Quarter: 2005Q4

REPORT INFORMATION
  Report Type: 
  Country: None (occurrence: None)
  Receive Date: 20051220
  Receipt Date: 20051208
  Transmission Date: 20060501
  Serious: Yes (Disabling, Other)
  Sender: FDA-Public Use
  Company Number: 2005GB02399

PATIENT
  Age: 65 Year
  Sex: Female
  Weight: 65 kg

DRUGS (8)
  1. ANASTROZOLE [Suspect]
     Indication: BREAST CANCER METASTATIC
     Route: 048
     Dates: start: 20050810, end: 20051109
  2. TAMOXIFEN [Concomitant]
     Route: 065
     Dates: start: 20051109
  3. DOMPERIDONE [Concomitant]
     Route: 065
     Dates: start: 20051123
  4. DIGOXIN [Concomitant]
     Route: 065
     Dates: start: 19990427
  5. WARFARIN SODIUM [Concomitant]
     Dosage: AS DIRECTED
     Route: 065
     Dates: start: 19990504
  6. CO-PROXAMOL [Concomitant]
     Indication: PAIN
     Dosage: 2 FOUR TIMES A DAY AS REQUIRED FOR PAIN
     Route: 065
     Dates: end: 20051021
  7. CALCIUM CARBIMIDE [Concomitant]
     Route: 065
     Dates: start: 20051010
  8. CALCIUM CARBONATE AND COLECALCIFEROL [Concomitant]

REACTIONS (3)
  - NAUSEA [None]
  - TREMOR [None]
  - VISION BLURRED [None]
